FAERS Safety Report 9849704 (Version 1)
Quarter: 2014Q1

REPORT INFORMATION
  Report Type: Spontaneous
  Country: US (occurrence: US)
  Receive Date: 20140128
  Receipt Date: 20140128
  Transmission Date: 20141002
  Serious: No
  Sender: FDA-Public Use
  Company Number: US-PFIZER INC-2014024764

PATIENT
  Sex: Male

DRUGS (3)
  1. CELEBREX [Suspect]
     Indication: NERVE COMPRESSION
     Dosage: UNK
  2. CELEBREX [Interacting]
     Indication: SCIATICA
  3. FLUCONAZOLE [Interacting]
     Indication: RHINITIS
     Dosage: UNK

REACTIONS (4)
  - Vision blurred [Unknown]
  - Ear disorder [Unknown]
  - Drug interaction [Unknown]
  - Sinus disorder [Unknown]
